FAERS Safety Report 18625192 (Version 2)
Quarter: 2020Q4

REPORT INFORMATION
  Report Type: Report from Study
  Country: US (occurrence: US)
  Receive Date: 20201216
  Receipt Date: 20201228
  Transmission Date: 20210114
  Serious: Yes (Hospitalization, Other)
  Sender: FDA-Public Use
  Company Number: US-BRISTOL-MYERS SQUIBB COMPANY-BMS-2020-104344

PATIENT
  Age: 54 Year
  Sex: Male
  Weight: 66.2 kg

DRUGS (2)
  1. BELATACEPT [Suspect]
     Active Substance: BELATACEPT
     Dosage: 5 MILLIGRAM/KILOGRAM, IV PUSH, DAY 112- 364
     Route: 042
     Dates: start: 20201204, end: 20201204
  2. BELATACEPT [Suspect]
     Active Substance: BELATACEPT
     Indication: LUNG TRANSPLANT
     Dosage: 10 MILLIGRAM/KILOGRAM, IV PUSH, DAY 0 -84
     Route: 042
     Dates: start: 20200911, end: 20200911

REACTIONS (1)
  - Acute respiratory failure [Unknown]

NARRATIVE: CASE EVENT DATE: 20201204
